FAERS Safety Report 15675652 (Version 4)
Quarter: 2019Q1

REPORT INFORMATION
  Report Type: Report from Study
  Country: US (occurrence: US)
  Receive Date: 20181130
  Receipt Date: 20190222
  Transmission Date: 20190417
  Serious: Yes (Hospitalization, Other)
  Sender: FDA-Public Use
  Company Number: US-BAYER-2018-188869

PATIENT
  Age: 83 Year
  Sex: Female

DRUGS (4)
  1. ACYCLOVIR [ACICLOVIR SODIUM] [Concomitant]
     Active Substance: ACYCLOVIR
  2. NEXAVAR [Suspect]
     Active Substance: SORAFENIB
     Indication: HEPATOCELLULAR CARCINOMA
     Dosage: 200 MG, BID
     Route: 048
     Dates: start: 20181003, end: 201810
  3. NEXAVAR [Suspect]
     Active Substance: SORAFENIB
     Indication: HEPATIC CANCER
     Dosage: 200 MG, BID
     Route: 048
     Dates: start: 201810, end: 20181224
  4. NEXAVAR [Suspect]
     Active Substance: SORAFENIB
     Indication: HEPATOCELLULAR CARCINOMA
     Dosage: 200 MG, BID
     Route: 048
     Dates: start: 201901, end: 201901

REACTIONS (32)
  - Product dose omission [None]
  - Headache [Recovering/Resolving]
  - Abdominal distension [None]
  - Peripheral swelling [None]
  - Abdominal discomfort [None]
  - Constipation [None]
  - Decreased appetite [None]
  - Erythema [None]
  - Arthralgia [Recovering/Resolving]
  - Laboratory test abnormal [None]
  - Headache [None]
  - Fatigue [None]
  - Confusional state [None]
  - Dry skin [None]
  - Chills [None]
  - Fall [None]
  - Blood pressure increased [Recovering/Resolving]
  - Epistaxis [None]
  - Pain in extremity [Recovering/Resolving]
  - Headache [None]
  - Pruritus [None]
  - Cerebral haemorrhage [None]
  - Back pain [Recovering/Resolving]
  - Off label use [None]
  - Depressed mood [None]
  - Abdominal pain [None]
  - Fatigue [Recovering/Resolving]
  - Weight decreased [None]
  - Decreased appetite [None]
  - Headache [None]
  - Cerebral haemorrhage [None]
  - Herpes zoster [None]

NARRATIVE: CASE EVENT DATE: 201810
